FAERS Safety Report 9689403 (Version 1)
Quarter: 2013Q4

REPORT INFORMATION
  Report Type: Spontaneous
  Country: US (occurrence: US)
  Receive Date: 20131114
  Receipt Date: 20131114
  Transmission Date: 20140711
  Serious: No
  Sender: FDA-Public Use
  Company Number: US-TEVA-443932USA

PATIENT
  Age: 40 Year
  Sex: Male
  Weight: 112.59 kg

DRUGS (1)
  1. AMRIX [Suspect]
     Indication: FIBROMYALGIA

REACTIONS (3)
  - Discomfort [Unknown]
  - Pain [Unknown]
  - Nausea [Unknown]
